FAERS Safety Report 8166746-7 (Version None)
Quarter: 2012Q1

REPORT INFORMATION
  Report Type: 
  Country: None (occurrence: None)
  Receive Date: 20120227
  Receipt Date: 20120215
  Transmission Date: 20120608
  Serious: Yes (Other)
  Sender: FDA-Public Use
  Company Number: CA-ROCHE-GNE312924

PATIENT
  Sex: Male

DRUGS (1)
  1. XOLAIR [Suspect]
     Indication: ASTHMA
     Dosage: 300 MG, Q2W
     Route: 058
     Dates: start: 20091026

REACTIONS (8)
  - PRODUCTIVE COUGH [None]
  - COUGH [None]
  - NASAL CONGESTION [None]
  - OBSTRUCTIVE AIRWAYS DISORDER [None]
  - RESPIRATORY TRACT CONGESTION [None]
  - PLEURAL RUB [None]
  - DYSPNOEA EXERTIONAL [None]
  - MULTIPLE ALLERGIES [None]
